FAERS Safety Report 5222997-2 (Version None)
Quarter: 2007Q1

REPORT INFORMATION
  Report Type: 
  Country: None (occurrence: None)
  Receive Date: 20061201
  Receipt Date: 20060707
  Transmission Date: 20070707
  Serious: No
  Sender: FDA-Public Use
  Company Number: 2006PV017193

PATIENT
  Age: 45 Year
  Sex: Female

DRUGS (9)
  1. BYETTA [Suspect]
     Indication: DIABETES MELLITUS NON-INSULIN-DEPENDENT
     Dosage: 10 MCG QAM SC ; 5 MCG QPM SC ; 10 MCG BID SC ; 10 MCG QAM SC ; 5 MCG QPM SC ; 5 MCG BID SC
     Route: 058
     Dates: start: 20060101, end: 20060101
  2. BYETTA [Suspect]
     Indication: DIABETES MELLITUS NON-INSULIN-DEPENDENT
     Dosage: 10 MCG QAM SC ; 5 MCG QPM SC ; 10 MCG BID SC ; 10 MCG QAM SC ; 5 MCG QPM SC ; 5 MCG BID SC
     Route: 058
     Dates: start: 20060101, end: 20060101
  3. BYETTA [Suspect]
     Indication: DIABETES MELLITUS NON-INSULIN-DEPENDENT
     Dosage: 10 MCG QAM SC ; 5 MCG QPM SC ; 10 MCG BID SC ; 10 MCG QAM SC ; 5 MCG QPM SC ; 5 MCG BID SC
     Route: 058
     Dates: start: 20060101, end: 20060101
  4. BYETTA [Suspect]
     Indication: DIABETES MELLITUS NON-INSULIN-DEPENDENT
     Dosage: 10 MCG QAM SC ; 5 MCG QPM SC ; 10 MCG BID SC ; 10 MCG QAM SC ; 5 MCG QPM SC ; 5 MCG BID SC
     Route: 058
     Dates: start: 20060401, end: 20060101
  5. BYETTA [Suspect]
     Indication: DIABETES MELLITUS NON-INSULIN-DEPENDENT
     Dosage: 10 MCG QAM SC ; 5 MCG QPM SC ; 10 MCG BID SC ; 10 MCG QAM SC ; 5 MCG QPM SC ; 5 MCG BID SC
     Route: 058
     Dates: start: 20060101
  6. BYETTA [Suspect]
     Indication: DIABETES MELLITUS NON-INSULIN-DEPENDENT
     Dosage: 10 MCG QAM SC ; 5 MCG QPM SC ; 10 MCG BID SC ; 10 MCG QAM SC ; 5 MCG QPM SC ; 5 MCG BID SC
     Route: 058
     Dates: start: 20060101
  7. GLUCOTROL [Concomitant]
  8. AVANDIA [Concomitant]
  9. MAVIK [Concomitant]

REACTIONS (4)
  - BLOOD GLUCOSE DECREASED [None]
  - BLOOD GLUCOSE INCREASED [None]
  - DECREASED APPETITE [None]
  - FEELING ABNORMAL [None]
